FAERS Safety Report 8955188 (Version 2)
Quarter: 2012Q4

REPORT INFORMATION
  Report Type: 
  Country: US (occurrence: US)
  Receive Date: 20121207
  Receipt Date: 20121226
  Transmission Date: 20130627
  Serious: No
  Sender: FDA-Public Use
  Company Number: US-PFIZER INC-2012307003

PATIENT
  Sex: Male

DRUGS (2)
  1. DEPO-MEDROL [Suspect]
     Indication: ROTATOR CUFF INJURY
     Dosage: UNK, single
     Route: 014
     Dates: start: 2012, end: 2012
  2. ACTOS [Concomitant]
     Indication: DIABETES
     Dosage: UNK

REACTIONS (1)
  - Blood glucose increased [Recovered/Resolved]
